FAERS Safety Report 6429599-0 (Version None)
Quarter: 2009Q4

REPORT INFORMATION
  Report Type: 
  Country: None (occurrence: None)
  Receive Date: 20091103
  Receipt Date: 20091019
  Transmission Date: 20100525
  Serious: Yes (Hospitalization)
  Sender: FDA-Public Use
  Company Number: 2009AC000285

PATIENT
  Sex: Male

DRUGS (15)
  1. DIGOXIN [Suspect]
     Dosage: PO
     Route: 048
     Dates: start: 20060101
  2. AMIODARONE HCL [Concomitant]
  3. ASPIRIN [Concomitant]
  4. COUMADIN [Concomitant]
  5. TOPROL-XL [Concomitant]
  6. LEVOTHYROXINE SODIUM [Concomitant]
  7. PROTONIX [Concomitant]
  8. MINOCYCLINE [Concomitant]
  9. LASIX [Concomitant]
  10. POTASSIUM CHLORIDE [Concomitant]
  11. LISINOPRIL [Concomitant]
  12. IMDUR [Concomitant]
  13. VYTORIN [Concomitant]
  14. ALDACTONE [Concomitant]
  15. XANAX [Concomitant]

REACTIONS (15)
  - ASTHENIA [None]
  - ATRIAL FIBRILLATION [None]
  - CORONARY ARTERY DISEASE [None]
  - DECREASED APPETITE [None]
  - DYSLIPIDAEMIA [None]
  - EARLY SATIETY [None]
  - ECONOMIC PROBLEM [None]
  - ELECTROLYTE IMBALANCE [None]
  - FAILURE TO THRIVE [None]
  - HYPONATRAEMIA [None]
  - HYPOTHYROIDISM [None]
  - INCISION SITE HAEMORRHAGE [None]
  - INJURY [None]
  - ISCHAEMIC CARDIOMYOPATHY [None]
  - TYPE 2 DIABETES MELLITUS [None]
